FAERS Safety Report 16313155 (Version 1)
Quarter: 2019Q2

REPORT INFORMATION
  Report Type: Spontaneous
  Country: US (occurrence: US)
  Receive Date: 20190409
  Receipt Date: 20190409
  Transmission Date: 20190711
  Serious: Yes (Hospitalization)
  Sender: FDA-Public Use
  Company Number: None

PATIENT
  Age: 14 Year
  Sex: Female
  Weight: 46 kg

DRUGS (5)
  1. CISPLATIN. [Suspect]
     Active Substance: CISPLATIN
     Dates: end: 20190315
  2. GEMCITABINE HYDROCHLORIDE. [Suspect]
     Active Substance: GEMCITABINE HYDROCHLORIDE
     Dates: end: 20190301
  3. NEXAVAR [Suspect]
     Active Substance: SORAFENIB
     Dates: end: 20190324
  4. ELOXATIN [Suspect]
     Active Substance: OXALIPLATIN
     Dates: end: 20190301
  5. DOXORUBICIN HYDROCHLORIDE. [Suspect]
     Active Substance: DOXORUBICIN HYDROCHLORIDE
     Dates: end: 20190316

REACTIONS (2)
  - Suture rupture [None]
  - Implant site dehiscence [None]

NARRATIVE: CASE EVENT DATE: 20190325
